FAERS Safety Report 22315920 (Version 1)
Quarter: 2023Q2

REPORT INFORMATION
  Report Type: Spontaneous
  Country: DE (occurrence: DE)
  Receive Date: 20230512
  Receipt Date: 20230512
  Transmission Date: 20230722
  Serious: Yes (Other)
  Sender: FDA-Public Use
  Company Number: DE-BAYER-2023A063436

PATIENT
  Age: 44 Year
  Sex: Male

DRUGS (1)
  1. REGORAFENIB [Suspect]
     Active Substance: REGORAFENIB
     Indication: Glioblastoma
     Dosage: UNK

REACTIONS (3)
  - Necrosis [Not Recovered/Not Resolved]
  - Glioblastoma [Not Recovered/Not Resolved]
  - Off label use [None]
